FAERS Safety Report 24044242 (Version 2)
Quarter: 2024Q3

REPORT INFORMATION
  Report Type: Report from Study
  Country: US (occurrence: US)
  Receive Date: 20240703
  Receipt Date: 20240715
  Transmission Date: 20241016
  Serious: Yes (Other)
  Sender: JOHNSON AND JOHNSON
  Company Number: US-JNJFOC-20240670695

PATIENT
  Age: 77 Year
  Sex: Female

DRUGS (5)
  1. SPRAVATO [Suspect]
     Active Substance: ESKETAMINE
     Indication: Depression
     Dosage: ^84 MG, 36 TOTAL DOSES^
     Dates: start: 20220126, end: 20220927
  2. SPRAVATO [Suspect]
     Active Substance: ESKETAMINE
     Dosage: ^56 MG, 1 TOTAL DOSE^
     Dates: start: 20221004, end: 20221004
  3. SPRAVATO [Suspect]
     Active Substance: ESKETAMINE
     Dosage: ^84 MG, 49 TOTAL DOSES^
     Dates: start: 20221011, end: 20240415
  4. SPRAVATO [Suspect]
     Active Substance: ESKETAMINE
     Dosage: ^56 MG, 1 TOTAL DOSE^
     Dates: start: 20240528, end: 20240528
  5. SPRAVATO [Suspect]
     Active Substance: ESKETAMINE
     Dosage: ^84 MG, 1 TOTAL DOSE^
     Dates: start: 20240625, end: 20240625

REACTIONS (3)
  - Hypoxia [Recovered/Resolved]
  - Dissociation [Recovered/Resolved]
  - Sedation [Recovered/Resolved]

NARRATIVE: CASE EVENT DATE: 20240625
